FAERS Safety Report 10009977 (Version 2)
Quarter: 2014Q1

REPORT INFORMATION
  Report Type: Spontaneous
  Country: US (occurrence: US)
  Receive Date: 20140312
  Receipt Date: 20140312
  Transmission Date: 20141002
  Serious: No
  Sender: FDA-Public Use
  Company Number: US-INCYTE CORPORATION-2013IN000509

PATIENT
  Age: 82 Year
  Sex: Male
  Weight: 64.85 kg

DRUGS (3)
  1. JAKAFI [Suspect]
     Indication: MYELOFIBROSIS
     Dosage: 15 MG, BID
     Route: 048
     Dates: start: 20130212
  2. JAKAFI [Suspect]
     Indication: SPLENOMEGALY
  3. HYDROXYUREA [Concomitant]

REACTIONS (3)
  - Musculoskeletal pain [Recovered/Resolved]
  - Decreased appetite [Recovered/Resolved]
  - Anaemia [Recovered/Resolved]
